FAERS Safety Report 12173471 (Version 2)
Quarter: 2016Q1

REPORT INFORMATION
  Report Type: Spontaneous
  Country: US (occurrence: US)
  Receive Date: 20160311
  Receipt Date: 20160317
  Transmission Date: 20160526
  Serious: No
  Sender: FDA-Public Use
  Company Number: US-GALDERMA-US15004351

PATIENT
  Sex: Female

DRUGS (13)
  1. PLAQUENIL [Concomitant]
     Active Substance: HYDROXYCHLOROQUINE SULFATE
  2. XIFAXAN [Concomitant]
     Active Substance: RIFAXIMIN
  3. TRI-LUMA [Suspect]
     Active Substance: FLUOCINOLONE ACETONIDE\HYDROQUINONE\TRETINOIN
     Indication: SKIN HYPERPIGMENTATION
     Route: 061
     Dates: start: 20150429, end: 20150515
  4. COREG [Concomitant]
     Active Substance: CARVEDILOL
  5. ZINC [Concomitant]
     Active Substance: ZINC\ZINC CHLORIDE
  6. SEROQUEL [Concomitant]
     Active Substance: QUETIAPINE FUMARATE
  7. SALAGEN [Concomitant]
     Active Substance: PILOCARPINE HYDROCHLORIDE
  8. WELLBUTRIN XL [Concomitant]
     Active Substance: BUPROPION HYDROCHLORIDE
  9. KEPPRA XR [Concomitant]
     Active Substance: LEVETIRACETAM
  10. PEPCID AC [Concomitant]
     Active Substance: FAMOTIDINE
  11. COLACE [Concomitant]
     Active Substance: DOCUSATE SODIUM
  12. CYMBALTA [Concomitant]
     Active Substance: DULOXETINE HYDROCHLORIDE
  13. CLARINEX [Concomitant]
     Active Substance: DESLORATADINE

REACTIONS (11)
  - Dry skin [Not Recovered/Not Resolved]
  - Skin injury [Not Recovered/Not Resolved]
  - Drug ineffective [Not Recovered/Not Resolved]
  - Inappropriate schedule of drug administration [Not Recovered/Not Resolved]
  - Pain of skin [Not Recovered/Not Resolved]
  - Pruritus [Not Recovered/Not Resolved]
  - Skin burning sensation [Not Recovered/Not Resolved]
  - Skin discolouration [Not Recovered/Not Resolved]
  - Scar [Not Recovered/Not Resolved]
  - Emotional distress [Not Recovered/Not Resolved]
  - Nasal discomfort [Not Recovered/Not Resolved]
